FAERS Safety Report 15947110 (Version 3)
Quarter: 2019Q3

REPORT INFORMATION
  Report Type: Report from Study
  Country: DE (occurrence: DE)
  Receive Date: 20190212
  Receipt Date: 20190828
  Transmission Date: 20191004
  Serious: Yes (Other)
  Sender: FDA-Public Use
  Company Number: DE-ROCHE-2259750

PATIENT
  Age: 45 Year
  Sex: Male

DRUGS (15)
  1. OCREVUS [Suspect]
     Active Substance: OCRELIZUMAB
     Indication: RELAPSING-REMITTING MULTIPLE SCLEROSIS
     Route: 042
     Dates: start: 201806
  2. ASPIRIN. [Concomitant]
     Active Substance: ASPIRIN
     Route: 065
  3. TAMSULOSIN [Concomitant]
     Active Substance: TAMSULOSIN
     Route: 065
  4. PROTAPHANE [Concomitant]
     Active Substance: INSULIN HUMAN
     Dosage: 16 IE -0 IE - 0IE
     Route: 065
  5. TRULICITY [Concomitant]
     Active Substance: DULAGLUTIDE
     Route: 065
  6. FENISTIL [Suspect]
     Active Substance: DIMETHINDENE
     Indication: PRODUCT USED FOR UNKNOWN INDICATION
     Route: 065
  7. CORTISONE [Suspect]
     Active Substance: CORTISONE
     Indication: PRODUCT USED FOR UNKNOWN INDICATION
     Route: 065
  8. CANDESARTAN. [Concomitant]
     Active Substance: CANDESARTAN
     Route: 065
  9. METFORMIN [Concomitant]
     Active Substance: METFORMIN HYDROCHLORIDE
     Route: 065
  10. ACTRAPID [Concomitant]
     Active Substance: INSULIN HUMAN
     Dosage: 16 IE - 18 IE EACH WITH MEALS
     Route: 065
  11. FORXIGA [Concomitant]
     Active Substance: DAPAGLIFLOZIN
     Route: 065
  12. OCREVUS [Suspect]
     Active Substance: OCRELIZUMAB
     Route: 042
     Dates: start: 201806
  13. OCREVUS [Suspect]
     Active Substance: OCRELIZUMAB
     Route: 042
     Dates: start: 20190124
  14. VENLAFAXIN [Concomitant]
     Active Substance: VENLAFAXINE HYDROCHLORIDE
     Route: 065
  15. AMITRIPTYLIN [Concomitant]
     Active Substance: AMITRIPTYLINE
     Dosage: 4-6: DOSE
     Route: 065

REACTIONS (5)
  - Hyperglycaemia [Recovered/Resolved]
  - Heart rate increased [Recovered/Resolved]
  - Fatigue [Recovered/Resolved]
  - Heart rate increased [Recovered/Resolved]
  - Restlessness [Recovered/Resolved]

NARRATIVE: CASE EVENT DATE: 201806
